FAERS Safety Report 5240333-2 (Version None)
Quarter: 2007Q1

REPORT INFORMATION
  Report Type: 
  Country: None (occurrence: None)
  Receive Date: 20070219
  Receipt Date: 20070206
  Transmission Date: 20070707
  Serious: Yes (Disabling)
  Sender: FDA-Public Use
  Company Number: PHNR2007AU00622

PATIENT
  Age: 43 Year
  Sex: Female

DRUGS (23)
  1. FAMVIR [Suspect]
     Dosage: 500 MG DAILY
     Route: 048
     Dates: start: 20060214
  2. DEXAMETHASONE [Suspect]
     Dosage: 8 MG, ONCE/SINGLE
     Route: 042
     Dates: start: 20060215, end: 20060215
  3. DEXAMETHASONE [Suspect]
     Dosage: 40 MG
     Route: 048
     Dates: start: 20060302, end: 20060305
  4. METHOTREXATE [Suspect]
     Dosage: 800 MG, ONCE/SINGLE
     Route: 042
     Dates: start: 20060215, end: 20060215
  5. ALLOPURINOL SODIUM [Suspect]
     Dosage: 300 MG DAILY
     Route: 048
     Dates: start: 20060119
  6. ZOFRAN [Suspect]
     Dosage: 16 MG DAILY
     Route: 048
     Dates: start: 20060214, end: 20060217
  7. ZOFRAN [Suspect]
     Dosage: 16 MG 2 TIMES
     Route: 048
     Dates: start: 20060302, end: 20060305
  8. FLUCONAZOLE [Suspect]
     Dosage: 200 MG DAILY
     Route: 048
     Dates: start: 20060214
  9. OXYCONTIN [Suspect]
     Dosage: 20 MG DAILY
     Route: 048
     Dates: start: 20060214, end: 20060228
  10. PARACETAMOL [Suspect]
     Dosage: 4 G DAILY
     Route: 048
     Dates: start: 20060213, end: 20060222
  11. CYCLOPHOSPHAMIDE [Suspect]
     Dosage: 1200 MG DAILY
     Route: 042
     Dates: start: 20060302, end: 20060304
  12. TIMENTIN [Suspect]
     Dosage: 12.4 G DAILY
     Route: 042
     Dates: start: 20060223, end: 20060305
  13. VINCRISTINE [Concomitant]
  14. ADRIAMYCIN PFS [Concomitant]
  15. FUNGIZONE [Concomitant]
     Dosage: 40 MG, QID
     Route: 048
     Dates: start: 20060128
  16. NYSTATIN [Concomitant]
     Dosage: 4 ML, QID
     Route: 048
     Dates: start: 20060128
  17. LACTULOSE [Concomitant]
     Dosage: 30 ML, BID
     Route: 048
     Dates: start: 20060214, end: 20060217
  18. COLOXYL WITH SENNA [Concomitant]
     Dosage: 4 TABLETS 2 TIMES
     Route: 048
     Dates: start: 20060214, end: 20060217
  19. ATORVASTATIN [Concomitant]
     Dosage: 10 MG DAILY
     Route: 048
     Dates: start: 20040101
  20. OMEPRAZOLE [Concomitant]
     Dosage: 20 MG DAILY
     Route: 048
     Dates: start: 20060123
  21. RAMIPRIL [Concomitant]
     Dosage: 10 MG DAILY
     Route: 048
     Dates: start: 20040101
  22. VANCOMYCIN HYDROCHLORIDE [Concomitant]
     Dosage: 2 G 2 TIMES
     Route: 042
     Dates: start: 20060227, end: 20060304
  23. BACTRIM DS [Concomitant]
     Route: 048

REACTIONS (3)
  - BRADYCARDIA [None]
  - CHEST DISCOMFORT [None]
  - HEART RATE ABNORMAL [None]
